FAERS Safety Report 4742565-6 (Version None)
Quarter: 2005Q3

REPORT INFORMATION
  Report Type: 
  Country: None (occurrence: None)
  Receive Date: 20050808
  Receipt Date: 20050720
  Transmission Date: 20060218
  Serious: Yes (Hospitalization)
  Sender: FDA-Public Use
  Company Number: US_0507120409

PATIENT
  Age: 85 Year
  Sex: Female

DRUGS (18)
  1. CYMBALTA [Suspect]
     Dosage: 30 MG DAY
     Dates: start: 20050701, end: 20050701
  2. MYLANTA (CALCIUM CARBONATE) [Concomitant]
  3. DIPHENHYDRAMINE HCL [Concomitant]
  4. MILK OF MAGNESIA TAB [Concomitant]
  5. ACETAMINOPHEN AND OXYCODONE HCL [Concomitant]
  6. TRAMADOL HCL [Concomitant]
  7. TYLENOL [Concomitant]
  8. VOLTAREN [Concomitant]
  9. DURAGESIC-100 [Concomitant]
  10. LASIX [Concomitant]
  11. GLIPIZIDE [Concomitant]
  12. LISINOPRIL [Concomitant]
  13. PREVACID [Concomitant]
  14. ASCORBIC ACID [Concomitant]
  15. WARFARIN [Concomitant]
  16. ZINC GLUCONATE [Concomitant]
  17. LEVAQUIN [Concomitant]
  18. FLAGYL [Concomitant]

REACTIONS (13)
  - ACUTE CORONARY SYNDROME [None]
  - BACTERIAL INFECTION [None]
  - CARDIAC FAILURE CONGESTIVE [None]
  - DIABETIC FOOT [None]
  - DIARRHOEA [None]
  - DILATATION ATRIAL [None]
  - JUGULAR VEIN DISTENSION [None]
  - LETHARGY [None]
  - LOBAR PNEUMONIA [None]
  - MYOCARDIAL INFARCTION [None]
  - RENAL FAILURE ACUTE [None]
  - SEPSIS [None]
  - SINUS TACHYCARDIA [None]
